FAERS Safety Report 4753286-8 (Version None)
Quarter: 2005Q3

REPORT INFORMATION
  Report Type: 
  Country: None (occurrence: None)
  Receive Date: 20050824
  Receipt Date: 20050812
  Transmission Date: 20060218
  Serious: Yes (Hospitalization)
  Sender: FDA-Public Use
  Company Number: USA-2005-0018759

PATIENT
  Age: 61 Year
  Sex: Male
  Weight: 77.1 kg

DRUGS (23)
  1. MS CONTIN [Suspect]
     Dosage: SEE IMAGE
  2. POTASSIUM CHLORIDE [Concomitant]
  3. COUMADIN [Concomitant]
  4. METHOTREXATE [Concomitant]
  5. PREDNISONE [Concomitant]
  6. RANITIDINE [Concomitant]
  7. CELEBREX [Concomitant]
  8. VICODIN ES [Concomitant]
  9. HUMIRA [Concomitant]
  10. FOLIC ACID [Concomitant]
  11. ACTONEL [Concomitant]
  12. ATENOLOL [Concomitant]
  13. NORVASC [Concomitant]
  14. CIPRO [Concomitant]
  15. LASIX [Concomitant]
  16. FLEXERIL [Concomitant]
  17. ZANTAC [Concomitant]
  18. NASONEX [Concomitant]
  19. PRAVACHOL [Concomitant]
  20. PROTONIX [Concomitant]
  21. LESCOL [Concomitant]
  22. NASACORT [Concomitant]
  23. LOVASTATIN [Concomitant]

REACTIONS (31)
  - ANAEMIA [None]
  - ARTHRALGIA [None]
  - ATRIAL FIBRILLATION [None]
  - BALANCE DISORDER [None]
  - BLOOD ALKALINE PHOSPHATASE INCREASED [None]
  - BLOOD PRESSURE DECREASED [None]
  - BRONCHITIS [None]
  - CHEST PAIN [None]
  - CHOLECYSTITIS [None]
  - CHOLELITHIASIS [None]
  - CONSTIPATION [None]
  - DEEP VEIN THROMBOSIS [None]
  - DIZZINESS [None]
  - ERYTHEMA [None]
  - FATIGUE [None]
  - HYPERHIDROSIS [None]
  - HYPOAESTHESIA [None]
  - INGUINAL HERNIA [None]
  - INSOMNIA [None]
  - LIBIDO DECREASED [None]
  - LIVER FUNCTION TEST ABNORMAL [None]
  - MUSCLE SPASMS [None]
  - OEDEMA PERIPHERAL [None]
  - PAIN IN EXTREMITY [None]
  - PERITONITIS [None]
  - PNEUMONIA [None]
  - RESPIRATORY FAILURE [None]
  - RHINORRHOEA [None]
  - SEPSIS [None]
  - TACHYCARDIA [None]
  - URINE FLOW DECREASED [None]
